FAERS Safety Report 23378743 (Version 1)
Quarter: 2024Q1

REPORT INFORMATION
  Report Type: Spontaneous
  Country: FR (occurrence: None)
  Receive Date: 20240108
  Receipt Date: 20240108
  Transmission Date: 20240409
  Serious: Yes (Other)
  Sender: FDA-Public Use
  Company Number: 2024A005006

PATIENT
  Age: 11 Day
  Sex: Female
  Weight: 2.9 kg

DRUGS (1)
  1. BEYFORTUS [Suspect]
     Active Substance: NIRSEVIMAB-ALIP
     Indication: Respiratory syncytial virus immunisation
     Dosage: 50 MG
     Route: 030
     Dates: start: 20231209, end: 20231209

REACTIONS (3)
  - Tachycardia [Recovered/Resolved]
  - Injection site erythema [Recovered/Resolved]
  - Rash macular [Recovered/Resolved]

NARRATIVE: CASE EVENT DATE: 20231210
